FAERS Safety Report 14578098 (Version 3)
Quarter: 2018Q2

REPORT INFORMATION
  Report Type: Spontaneous
  Country: BG (occurrence: BG)
  Receive Date: 20180227
  Receipt Date: 20180507
  Transmission Date: 20180711
  Serious: Yes (Other)
  Sender: FDA-Public Use
  Company Number: BG-SA-2018SA041733

PATIENT
  Age: 61 Year
  Sex: Male

DRUGS (6)
  1. BUSERELIN [Concomitant]
     Active Substance: BUSERELIN
     Indication: PROSTATE CANCER METASTATIC
     Route: 065
     Dates: start: 201801, end: 201801
  2. JEVTANA [Suspect]
     Active Substance: CABAZITAXEL
     Indication: PROSTATE CANCER METASTATIC
     Route: 042
     Dates: start: 201711, end: 201711
  3. JEVTANA [Suspect]
     Active Substance: CABAZITAXEL
     Indication: PROSTATE CANCER METASTATIC
     Route: 042
     Dates: start: 201801, end: 201801
  4. ZOLEDRONATE [Concomitant]
     Active Substance: ZOLEDRONIC ACID
     Indication: PROSTATE CANCER METASTATIC
     Route: 065
     Dates: start: 201711, end: 201711
  5. ZOLEDRONATE [Concomitant]
     Active Substance: ZOLEDRONIC ACID
     Indication: PROSTATE CANCER METASTATIC
     Route: 065
     Dates: start: 201801, end: 201801
  6. BUSERELIN [Concomitant]
     Active Substance: BUSERELIN
     Indication: PROSTATE CANCER METASTATIC
     Route: 065
     Dates: start: 201711, end: 201711

REACTIONS (10)
  - Decreased appetite [Recovered/Resolved]
  - Anaemia [Recovered/Resolved]
  - Peripheral sensory neuropathy [Recovered/Resolved]
  - Neutropenia [Recovered/Resolved]
  - Myalgia [Recovered/Resolved]
  - Thrombocytopenia [Recovered/Resolved]
  - Dysgeusia [Recovered/Resolved]
  - Leukopenia [Recovered/Resolved]
  - Fatigue [Recovered/Resolved]
  - Arthralgia [Recovered/Resolved]

NARRATIVE: CASE EVENT DATE: 20171110
